FAERS Safety Report 10222554 (Version 1)
Quarter: 2014Q2

REPORT INFORMATION
  Report Type: Spontaneous
  Country: IT (occurrence: IT)
  Receive Date: 20140606
  Receipt Date: 20140606
  Transmission Date: 20141212
  Serious: Yes (Hospitalization)
  Sender: FDA-Public Use
  Company Number: IT-WATSON-2013-25361

PATIENT
  Age: 44 Year
  Sex: Female

DRUGS (1)
  1. ANTABUSE [Suspect]
     Indication: PRODUCT USED FOR UNKNOWN INDICATION
     Dosage: 400 MG, DAILY
     Route: 048
     Dates: start: 20130701, end: 20130720

REACTIONS (5)
  - Abnormal loss of weight [Unknown]
  - Asthenia [Unknown]
  - Muscular weakness [Unknown]
  - Polyneuropathy [Unknown]
  - Malnutrition [Unknown]
